FAERS Safety Report 6838796-1 (Version None)
Quarter: 2010Q3

REPORT INFORMATION
  Report Type: 
  Country: None (occurrence: None)
  Receive Date: 20100713
  Receipt Date: 20070706
  Transmission Date: 20110219
  Serious: No
  Sender: FDA-Public Use
  Company Number: US-PFIZER INC-2007036194

PATIENT
  Sex: Male
  Weight: 81.6 kg

DRUGS (2)
  1. CHANTIX [Suspect]
     Indication: SMOKING CESSATION THERAPY
     Dates: start: 20070501
  2. LOVASTATIN [Concomitant]

REACTIONS (5)
  - ANXIETY [None]
  - HEART RATE INCREASED [None]
  - HOT FLUSH [None]
  - NERVOUSNESS [None]
  - PALPITATIONS [None]
